FAERS Safety Report 7489475-1 (Version None)
Quarter: 2011Q2

REPORT INFORMATION
  Report Type: 
  Country: None (occurrence: None)
  Receive Date: 20110518
  Receipt Date: 20110511
  Transmission Date: 20111010
  Serious: Yes (Life-Threatening, Hospitalization, Other)
  Sender: FDA-Public Use
  Company Number: AU-GENENTECH-260231

PATIENT
  Sex: Male
  Weight: 89.5 kg

DRUGS (50)
  1. PANTOPRAZOLE [Concomitant]
     Indication: PRODUCT USED FOR UNKNOWN INDICATION
     Dosage: UNK, UNK
     Dates: start: 20071001, end: 20080101
  2. BACTRIM [Concomitant]
     Indication: PRODUCT USED FOR UNKNOWN INDICATION
     Dosage: UNK, UNK
     Dates: start: 20071130, end: 20080204
  3. KYTRIL [Concomitant]
     Dosage: UNK
     Dates: start: 20080501, end: 20080501
  4. BLINDED RITUXIMAB [Suspect]
     Dosage: 1320 MG, Q21D
     Route: 042
     Dates: start: 20071119
  5. ALLOPURINOL [Concomitant]
     Dosage: UNK
     Dates: start: 20071117, end: 20080819
  6. COLOXYL WITH SENNA [Concomitant]
     Dosage: UNK
     Dates: start: 20080602, end: 20080602
  7. SPIRONOLACTONE [Concomitant]
     Indication: PRODUCT USED FOR UNKNOWN INDICATION
     Dosage: UNK
     Dates: start: 20080516, end: 20080719
  8. CLARATYNE [Concomitant]
     Dosage: UNK
     Dates: start: 20080301, end: 20080301
  9. RITUXIMAB [Suspect]
     Indication: DIFFUSE LARGE B-CELL LYMPHOMA
     Dosage: 750 MG, Q21D
     Route: 042
     Dates: start: 20071120
  10. VINCRISTINE [Suspect]
     Indication: DIFFUSE LARGE B-CELL LYMPHOMA
     Dosage: 2 MG, Q21D
     Route: 042
     Dates: start: 20071120
  11. CENTRUM [Concomitant]
     Indication: PRODUCT USED FOR UNKNOWN INDICATION
     Dosage: UNK
     Dates: start: 20071105
  12. PANADOL [Concomitant]
     Dosage: UNK
     Dates: start: 20080501, end: 20080501
  13. CHLORAMPHENICOL [Concomitant]
     Indication: PRODUCT USED FOR UNKNOWN INDICATION
     Dosage: UNK
     Dates: start: 20081126
  14. FUROSEMIDE [Concomitant]
     Dosage: UNK
     Dates: start: 20080515, end: 20080531
  15. CYCLOPHOSPHAMIDE [Suspect]
     Indication: DIFFUSE LARGE B-CELL LYMPHOMA
     Dosage: 1500 MG, Q21D
     Route: 042
     Dates: start: 20071120, end: 20080410
  16. LORAZEPAM [Concomitant]
     Indication: PRODUCT USED FOR UNKNOWN INDICATION
     Dosage: UNK, UNK
     Dates: start: 20080103, end: 20080101
  17. SLOW-K [Concomitant]
     Indication: PRODUCT USED FOR UNKNOWN INDICATION
     Dosage: UNK
     Dates: start: 20080101
  18. ENOXAPARIN SODIUM [Concomitant]
     Dosage: UNK
     Dates: start: 20080714, end: 20080716
  19. VITAMIN K TAB [Concomitant]
     Indication: PRODUCT USED FOR UNKNOWN INDICATION
     Dosage: UNK
     Dates: start: 20080421, end: 20080421
  20. MAXOLON [Concomitant]
     Indication: PRODUCT USED FOR UNKNOWN INDICATION
     Dosage: UNK
     Dates: start: 20080601, end: 20080601
  21. TEMAZ [Concomitant]
     Indication: PRODUCT USED FOR UNKNOWN INDICATION
     Dosage: UNK
     Dates: start: 20071031, end: 20080101
  22. FUROSEMIDE [Concomitant]
     Dosage: UNK
     Dates: start: 20080604
  23. AVASTIN [Suspect]
     Dosage: 1320 MG, Q21D
     Route: 042
     Dates: start: 20071119
  24. PLACEBO [Suspect]
     Dosage: 1320 MG, Q21D
     Route: 042
     Dates: start: 20071119
  25. DOXORUBICIN HCL [Suspect]
     Indication: DIFFUSE LARGE B-CELL LYMPHOMA
     Dosage: 100 MG, Q21D
     Route: 042
     Dates: start: 20071120
  26. ALLOPURINOL [Concomitant]
     Indication: PRODUCT USED FOR UNKNOWN INDICATION
     Dosage: UNK
     Dates: start: 20071001, end: 20071116
  27. OXYCODONE HCL [Concomitant]
     Indication: PRODUCT USED FOR UNKNOWN INDICATION
     Dosage: UNK, UNK
     Dates: start: 20071114, end: 20080101
  28. ENOXAPARIN SODIUM [Concomitant]
     Indication: PRODUCT USED FOR UNKNOWN INDICATION
     Dosage: 190 MG, QD
     Dates: start: 20080410, end: 20080417
  29. ENOXAPARIN SODIUM [Concomitant]
     Dosage: UNK MG, UNK
     Dates: start: 20080418, end: 20080420
  30. CYCLOPHOSPHAMIDE [Suspect]
     Dosage: 1320 MG, Q21D
     Route: 042
     Dates: start: 20071119
  31. PREDNISONE TAB [Suspect]
     Dosage: 1320 MG, Q21D
     Route: 042
     Dates: start: 20071119
  32. VINCRISTINE [Suspect]
     Dosage: 1320 MG, Q21D
     Route: 042
     Dates: start: 20071119
  33. PREDNISOLONE [Suspect]
     Indication: DIFFUSE LARGE B-CELL LYMPHOMA
     Dosage: 100 MG, QDX5D/21DC
     Route: 048
     Dates: start: 20071120
  34. SLOW-K [Concomitant]
     Dosage: UNK
     Dates: start: 20080415
  35. WARFARIN SODIUM [Concomitant]
     Indication: PRODUCT USED FOR UNKNOWN INDICATION
     Dosage: UNK
     Dates: start: 20080410, end: 20080420
  36. NILSTAT [Concomitant]
     Indication: PRODUCT USED FOR UNKNOWN INDICATION
     Dosage: 4 ML, UNK
     Dates: start: 20080604
  37. PANADOL [Concomitant]
     Indication: PRODUCT USED FOR UNKNOWN INDICATION
     Dosage: UNK
     Dates: start: 20080410, end: 20080410
  38. MIDAZOLAM HCL [Concomitant]
     Indication: PRODUCT USED FOR UNKNOWN INDICATION
     Dosage: UNK
     Dates: start: 20080623, end: 20080623
  39. MULTI-VITAMIN [Concomitant]
     Indication: PRODUCT USED FOR UNKNOWN INDICATION
     Dosage: UNK
     Dates: start: 20071105, end: 20080715
  40. KEFLIN [Concomitant]
     Indication: PRODUCT USED FOR UNKNOWN INDICATION
     Dosage: UNK
     Dates: start: 20080501, end: 20080505
  41. DOXORUBICIN HCL [Suspect]
     Dosage: 1320 MG, Q21D
     Route: 042
     Dates: start: 20071119
  42. COLOXYL WITH SENNA [Concomitant]
     Indication: PRODUCT USED FOR UNKNOWN INDICATION
     Dosage: 1 DF, QD
     Dates: start: 20071011, end: 20080101
  43. FENTANYL-100 [Concomitant]
     Indication: PRODUCT USED FOR UNKNOWN INDICATION
     Dosage: UNK, UNK
     Dates: start: 20071128, end: 20080219
  44. BIOTENE MOUTHWASH [Concomitant]
     Indication: PRODUCT USED FOR UNKNOWN INDICATION
     Dosage: UNK
     Dates: start: 20071126
  45. NILSTAT [Concomitant]
     Dosage: UNK
     Dates: start: 20080313, end: 20080315
  46. KYTRIL [Concomitant]
     Indication: PRODUCT USED FOR UNKNOWN INDICATION
     Dosage: UNK
     Dates: start: 20080410, end: 20080410
  47. LACTULOSE [Concomitant]
     Indication: PRODUCT USED FOR UNKNOWN INDICATION
     Dosage: UNK
     Dates: start: 20080602, end: 20080602
  48. OXYCONTIN [Concomitant]
     Indication: PRODUCT USED FOR UNKNOWN INDICATION
     Dosage: UNK, UNK
     Dates: start: 20071007, end: 20080101
  49. CLARATYNE [Concomitant]
     Indication: PRODUCT USED FOR UNKNOWN INDICATION
     Dosage: UNK
     Dates: start: 20080410, end: 20080410
  50. FUROSEMIDE [Concomitant]
     Indication: PRODUCT USED FOR UNKNOWN INDICATION
     Dosage: UNK
     Dates: start: 20080401

REACTIONS (4)
  - SPLENOMEGALY [None]
  - DEEP VEIN THROMBOSIS [None]
  - GASTRIC PERFORATION [None]
  - ASCITES [None]
